FAERS Safety Report 5544979-3 (Version None)
Quarter: 2007Q4

REPORT INFORMATION
  Report Type: 
  Country: None (occurrence: None)
  Receive Date: 20071210
  Receipt Date: 20070118
  Transmission Date: 20080405
  Serious: No
  Sender: FDA-Public Use
  Company Number: US-AMGEN-KDL207687

PATIENT
  Sex: Female

DRUGS (4)
  1. ENBREL [Suspect]
     Indication: RHEUMATOID ARTHRITIS
     Route: 058
     Dates: start: 20060824, end: 20061210
  2. PLAQUENIL [Concomitant]
     Dates: start: 20060101
  3. METHOTREXATE [Concomitant]
     Dates: start: 20050101
  4. ARAVA [Concomitant]
     Dates: start: 20061101

REACTIONS (2)
  - NASOPHARYNGITIS [None]
  - SINUS DISORDER [None]
